FAERS Safety Report 15725452 (Version 1)
Quarter: 2018Q4

REPORT INFORMATION
  Report Type: Report from Study
  Country: US (occurrence: US)
  Receive Date: 20181215
  Receipt Date: 20181215
  Transmission Date: 20190205
  Serious: Yes (Hospitalization, Other)
  Sender: FDA-Public Use
  Company Number: US-ROCHE-2171717

PATIENT
  Age: 61 Year
  Sex: Male
  Weight: 72.3 kg

DRUGS (1)
  1. ATEZOLIZUMAB. [Suspect]
     Active Substance: ATEZOLIZUMAB
     Indication: BILIARY NEOPLASM
     Route: 042
     Dates: start: 20180723

REACTIONS (4)
  - Pyrexia [Recovering/Resolving]
  - Hypokalaemia [Unknown]
  - Meningitis [Unknown]
  - Febrile neutropenia [Unknown]

NARRATIVE: CASE EVENT DATE: 20180803
